FAERS Safety Report 21144506 (Version 2)
Quarter: 2022Q3

REPORT INFORMATION
  Report Type: Report from Study
  Country: US (occurrence: None)
  Receive Date: 20220728
  Receipt Date: 20220916
  Transmission Date: 20221027
  Serious: Yes (Hospitalization)
  Sender: FDA-Public Use
  Company Number: US-Eisai Medical Research-EC-2022-118775

PATIENT
  Age: 67 Year
  Sex: Female

DRUGS (4)
  1. LENVIMA [Interacting]
     Active Substance: LENVATINIB
     Indication: Endometrial cancer
     Route: 048
     Dates: start: 20220628, end: 20220830
  2. LENVIMA [Interacting]
     Active Substance: LENVATINIB
     Route: 048
     Dates: start: 20220831
  3. PHENYTOIN [Interacting]
     Active Substance: PHENYTOIN
     Indication: Seizure
     Dosage: UNKNOWN DOSE AND FREQUENCY
     Dates: end: 2022
  4. KEYTRUDA [Concomitant]
     Active Substance: PEMBROLIZUMAB
     Indication: Endometrial cancer
     Dosage: DOSE AND FREQUENCY NOT PROVIDED
     Route: 042
     Dates: start: 2022

REACTIONS (15)
  - Blood pressure diastolic increased [Not Recovered/Not Resolved]
  - Urinary tract infection [Recovering/Resolving]
  - Seizure [Recovering/Resolving]
  - Anticonvulsant drug level below therapeutic [Unknown]
  - Pleural effusion [Recovering/Resolving]
  - Drug interaction [Recovering/Resolving]
  - Arthralgia [Unknown]
  - Cough [Unknown]
  - Urinary incontinence [Unknown]
  - Nausea [Not Recovered/Not Resolved]
  - Decreased appetite [Unknown]
  - Fluid intake reduced [Unknown]
  - Hypothyroidism [Unknown]
  - Vomiting [Unknown]
  - Abdominal pain upper [Unknown]

NARRATIVE: CASE EVENT DATE: 20220101
